FAERS Safety Report 10923587 (Version 2)
Quarter: 2015Q2

REPORT INFORMATION
  Report Type: Spontaneous
  Country: US (occurrence: US)
  Receive Date: 20150318
  Receipt Date: 20150526
  Transmission Date: 20150821
  Serious: No
  Sender: FDA-Public Use
  Company Number: US-JNJFOC-20131013067

PATIENT
  Age: 48 Year
  Sex: Male

DRUGS (1)
  1. HALOPERIDOL. [Suspect]
     Active Substance: HALOPERIDOL
     Indication: VOMITING
     Route: 042

REACTIONS (3)
  - Incorrect route of drug administration [Unknown]
  - Product use issue [Unknown]
  - Therapeutic response unexpected [Unknown]
